FAERS Safety Report 21025648 (Version 2)
Quarter: 2023Q1

REPORT INFORMATION
  Report Type: Spontaneous
  Country: DE (occurrence: DE)
  Receive Date: 20220630
  Receipt Date: 20230104
  Transmission Date: 20230418
  Serious: Yes (Hospitalization, Disabling, Other)
  Sender: FDA-Public Use
  Company Number: DE-SANOFI-01164137

PATIENT
  Age: 38 Year
  Sex: Male

DRUGS (2)
  1. DUPIXENT [Suspect]
     Active Substance: DUPILUMAB
     Dosage: UNK
  2. MOMETASONE [Concomitant]
     Active Substance: MOMETASONE
     Dosage: UNK

REACTIONS (7)
  - Squamous cell carcinoma of skin [Unknown]
  - Condition aggravated [Unknown]
  - Eye abscess [Unknown]
  - Eye disorder [Unknown]
  - Impaired healing [Unknown]
  - Conjunctivitis [Unknown]
  - Blepharitis [Unknown]

NARRATIVE: CASE EVENT DATE: 20220601
